FAERS Safety Report 15015835 (Version 7)
Quarter: 2018Q4

REPORT INFORMATION
  Report Type: Spontaneous
  Country: FR (occurrence: FR)
  Receive Date: 20180615
  Receipt Date: 20181112
  Transmission Date: 20190204
  Serious: Yes (Hospitalization)
  Sender: FDA-Public Use
  Company Number: FR-FERRINGPH-2018FE03030

PATIENT

DRUGS (3)
  1. FIRMAGON [Suspect]
     Active Substance: DEGARELIX ACETATE
     Indication: PROSTATE CANCER
     Dosage: IN TOTAL
     Route: 058
     Dates: start: 20180519, end: 20180519
  2. LIPANTHYL [Suspect]
     Active Substance: FENOFIBRATE
     Indication: CARDIOVASCULAR EVENT PROPHYLAXIS
     Dosage: 1 DF, 1 TIME DAILY
     Route: 048
     Dates: end: 20180527
  3. LISINOPRIL ANHYDROUS [Suspect]
     Active Substance: LISINOPRIL
     Indication: HYPERTENSION
     Dosage: 10 MG, 1 TIME DAILY
     Route: 048
     Dates: end: 20180527

REACTIONS (3)
  - Hyperkalaemia [Recovered/Resolved]
  - Ureterolithiasis [Recovered/Resolved]
  - Acute kidney injury [Recovered/Resolved]

NARRATIVE: CASE EVENT DATE: 20180527
